FAERS Safety Report 4437194-8 (Version None)
Quarter: 2004Q3

REPORT INFORMATION
  Report Type: 
  Country: None (occurrence: None)
  Receive Date: 20040726
  Receipt Date: 20040521
  Transmission Date: 20050211
  Serious: No
  Sender: FDA-Public Use
  Company Number: USA040360898

PATIENT
  Age: 71 Year
  Sex: Female
  Weight: 80 kg

DRUGS (4)
  1. FORTEO [Suspect]
     Indication: OSTEOPOROSIS
     Dosage: 20 UG DAY
     Dates: start: 20031201
  2. TENORMIN [Concomitant]
  3. QUININE [Concomitant]
  4. NEXIUM [Concomitant]

REACTIONS (9)
  - EXCORIATION [None]
  - FALL [None]
  - HEADACHE [None]
  - INJECTION SITE PAIN [None]
  - INJURY [None]
  - LIMB INJURY [None]
  - NAUSEA [None]
  - PAIN [None]
  - PAIN IN EXTREMITY [None]
